FAERS Safety Report 4910906-2 (Version None)
Quarter: 2006Q1

REPORT INFORMATION
  Report Type: 
  Country: None (occurrence: None)
  Receive Date: 20060214
  Receipt Date: 20060209
  Transmission Date: 20060701
  Serious: Yes (Death)
  Sender: FDA-Public Use
  Company Number: 2006PK00321

PATIENT
  Age: 53 Year
  Sex: Male

DRUGS (6)
  1. SEROQUEL [Suspect]
     Route: 048
     Dates: start: 20051114, end: 20051114
  2. SEROQUEL [Suspect]
     Route: 048
     Dates: start: 20051115, end: 20051115
  3. SEROQUEL [Suspect]
     Route: 048
     Dates: start: 20051116, end: 20051121
  4. SEROQUEL [Suspect]
     Route: 048
     Dates: start: 20051122, end: 20051127
  5. ZOLOFT [Suspect]
     Route: 048
     Dates: start: 20051105, end: 20051127
  6. LEXOTANIL [Suspect]
     Route: 048
     Dates: start: 20051105, end: 20051127

REACTIONS (1)
  - COMPLETED SUICIDE [None]
